FAERS Safety Report 20128761 (Version 1)
Quarter: 2021Q4

REPORT INFORMATION
  Report Type: Spontaneous
  Country: IT (occurrence: IT)
  Receive Date: 20211130
  Receipt Date: 20211130
  Transmission Date: 20220303
  Serious: Yes (Other)
  Sender: FDA-Public Use
  Company Number: IT-ABBVIE-21K-083-4178580-00

PATIENT
  Age: 55 Year
  Sex: Female

DRUGS (2)
  1. VALPROIC ACID [Suspect]
     Active Substance: VALPROIC ACID
     Indication: Bipolar disorder
     Dosage: SINCE 10 YEARS
     Route: 048
     Dates: start: 2010
  2. LAMICTAL [Concomitant]
     Active Substance: LAMOTRIGINE
     Indication: Product used for unknown indication

REACTIONS (6)
  - Loss of consciousness [Unknown]
  - Muscular weakness [Unknown]
  - Parosmia [Unknown]
  - Cerebral atrophy [Unknown]
  - Paraesthesia [Unknown]
  - Tremor [Unknown]
